FAERS Safety Report 5837307-7 (Version None)
Quarter: 2008Q3

REPORT INFORMATION
  Report Type: 
  Country: None (occurrence: None)
  Receive Date: 20080731
  Receipt Date: 20080606
  Transmission Date: 20090109
  Serious: No
  Sender: FDA-Public Use
  Company Number: US200806002014

PATIENT
  Age: 71 Year
  Sex: Female

DRUGS (3)
  1. BYETTA [Suspect]
     Indication: TYPE 2 DIABETES MELLITUS
     Dosage: 5 UG, 2/D, SUBCUTANEOUS
     Route: 058
     Dates: start: 20080601
  2. GLIPIZIDE [Concomitant]
  3. HUMULIN N [Concomitant]

REACTIONS (5)
  - BLOOD GLUCOSE DECREASED [None]
  - FEELING JITTERY [None]
  - HEART RATE INCREASED [None]
  - MUSCULAR WEAKNESS [None]
  - NERVOUSNESS [None]
